FAERS Safety Report 9783912 (Version 1)
Quarter: 2013Q4

REPORT INFORMATION
  Report Type: Spontaneous
  Country: US (occurrence: US)
  Receive Date: 20131226
  Receipt Date: 20131226
  Transmission Date: 20140711
  Serious: No
  Sender: FDA-Public Use
  Company Number: US-PFIZER INC-2013364326

PATIENT
  Age: 18 Year
  Sex: Male
  Weight: 86.17 kg

DRUGS (4)
  1. ADVIL [Suspect]
     Indication: HEADACHE
     Dosage: 200 MG, AS NEEDED
     Route: 048
     Dates: end: 20131218
  2. ADVIL [Suspect]
     Indication: NECK PAIN
     Dosage: 1000 MG (5 LIQUIGELS OF 200MG), AT ONCE
     Route: 048
     Dates: start: 20131218
  3. GEODON [Concomitant]
     Dosage: UNK
  4. LITHIUM [Concomitant]
     Dosage: UNK

REACTIONS (5)
  - Extra dose administered [Unknown]
  - Tremor [Not Recovered/Not Resolved]
  - Vision blurred [Not Recovered/Not Resolved]
  - Feeling abnormal [Not Recovered/Not Resolved]
  - Abdominal pain upper [Not Recovered/Not Resolved]
